FAERS Safety Report 9701437 (Version 3)
Quarter: 2015Q3

REPORT INFORMATION
  Report Type: Spontaneous
  Country: US (occurrence: US)
  Receive Date: 20131121
  Receipt Date: 20150803
  Transmission Date: 20151125
  Serious: No
  Sender: FDA-Public Use
  Company Number: US-GILEAD-2008-0016675

PATIENT
  Age: 65 Year
  Sex: Female

DRUGS (17)
  1. COUMADIN [Concomitant]
     Active Substance: WARFARIN SODIUM
  2. ALBUTEROL. [Concomitant]
     Active Substance: ALBUTEROL
  3. KEFLEX [Concomitant]
     Active Substance: CEPHALEXIN
  4. METOPROLOL [Concomitant]
     Active Substance: METOPROLOL
  5. HYDRALAZINE [Concomitant]
     Active Substance: HYDRALAZINE HYDROCHLORIDE
  6. ALLOPURINOL. [Concomitant]
     Active Substance: ALLOPURINOL
  7. ISOSORBIDE. [Concomitant]
     Active Substance: ISOSORBIDE
  8. SENOKOT [Concomitant]
     Active Substance: SENNOSIDES
  9. BUMEX [Concomitant]
     Active Substance: BUMETANIDE
  10. AMARYL [Concomitant]
     Active Substance: GLIMEPIRIDE
  11. REGLAN [Concomitant]
     Active Substance: METOCLOPRAMIDE HYDROCHLORIDE
  12. SYMBICORT [Concomitant]
     Active Substance: BUDESONIDE\FORMOTEROL FUMARATE DIHYDRATE
  13. LANOXIN [Concomitant]
     Active Substance: DIGOXIN
  14. ZOCOR [Concomitant]
     Active Substance: SIMVASTATIN
  15. SPIRIVA [Concomitant]
     Active Substance: TIOTROPIUM BROMIDE MONOHYDRATE
  16. PRILOSEC [Concomitant]
     Active Substance: OMEPRAZOLE MAGNESIUM
  17. LETAIRIS [Suspect]
     Active Substance: AMBRISENTAN
     Indication: PULMONARY ARTERIAL HYPERTENSION

REACTIONS (1)
  - Nausea [None]
